FAERS Safety Report 15631887 (Version 1)
Quarter: 2018Q4

REPORT INFORMATION
  Report Type: Report from Study
  Country: RO (occurrence: RO)
  Receive Date: 20181119
  Receipt Date: 20181119
  Transmission Date: 20190205
  Serious: Yes (Hospitalization)
  Sender: FDA-Public Use
  Company Number: RO-ROCHE-2216195

PATIENT
  Age: 54 Year
  Sex: Female

DRUGS (4)
  1. LEDIPASVIR/SOFOSBUVIR [Suspect]
     Active Substance: LEDIPASVIR\SOFOSBUVIR
     Indication: HEPATITIS C
  2. RIBAVIRIN. [Suspect]
     Active Substance: RIBAVIRIN
     Indication: HEPATITIS C
     Dosage: 3 DF, QD
     Route: 048
     Dates: start: 20170919, end: 201712
  3. LEDIPASVIR/SOFOSBUVIR [Suspect]
     Active Substance: LEDIPASVIR\SOFOSBUVIR
     Indication: HEPATIC CIRRHOSIS
     Dosage: 1 DF, QD
     Route: 048
     Dates: start: 20170919, end: 201712
  4. RIBAVIRIN. [Suspect]
     Active Substance: RIBAVIRIN
     Indication: HEPATIC CIRRHOSIS

REACTIONS (6)
  - Varices oesophageal [Unknown]
  - Portal vein thrombosis [Unknown]
  - Hepatocellular carcinoma [Unknown]
  - Abdominal pain upper [Unknown]
  - Ulcer [Unknown]
  - Upper gastrointestinal haemorrhage [Unknown]

NARRATIVE: CASE EVENT DATE: 20180701
